FAERS Safety Report 11656673 (Version 1)
Quarter: 2015Q4

REPORT INFORMATION
  Report Type: Spontaneous
  Country: US (occurrence: US)
  Receive Date: 20151023
  Receipt Date: 20151023
  Transmission Date: 20160304
  Serious: Yes (Other)
  Sender: FDA-Public Use
  Company Number: US-SA-2015SA164364

PATIENT
  Sex: Female

DRUGS (2)
  1. BRINTELLIX [Interacting]
     Active Substance: VORTIOXETINE HYDROBROMIDE
     Indication: MAJOR DEPRESSION
     Route: 048
  2. LASIX [Suspect]
     Active Substance: FUROSEMIDE
     Indication: CARDIAC VALVE DISEASE
     Route: 048

REACTIONS (3)
  - Oedema [Recovering/Resolving]
  - Drug interaction [Unknown]
  - Inappropriate antidiuretic hormone secretion [Unknown]
